FAERS Safety Report 9130752 (Version 1)
Quarter: 2013Q1

REPORT INFORMATION
  Report Type: Spontaneous
  Country: EC (occurrence: EC)
  Receive Date: 20130301
  Receipt Date: 20130301
  Transmission Date: 20140127
  Serious: Yes (Other)
  Sender: FDA-Public Use
  Company Number: PHHY2013EC019802

PATIENT
  Age: 76 Year
  Sex: Male

DRUGS (4)
  1. DIOVAN [Suspect]
     Indication: HYPERTENSION
     Dosage: 160 MG, QD
     Route: 048
     Dates: end: 20121204
  2. DIOVAN [Suspect]
     Dosage: 320 MG, QD
     Route: 048
     Dates: start: 20121204
  3. CONCOR [Concomitant]
     Indication: HYPERTENSION
     Dosage: UNK UKN, QD
  4. PROCORALAN [Concomitant]
     Indication: CARDIAC FIBRILLATION
     Dosage: UNK UKN, QD

REACTIONS (1)
  - Transient ischaemic attack [Recovered/Resolved]
